FAERS Safety Report 20080191 (Version 1)
Quarter: 2021Q4

REPORT INFORMATION
  Report Type: Report from Study
  Country: US (occurrence: US)
  Receive Date: 20211117
  Receipt Date: 20211117
  Transmission Date: 20220303
  Serious: No
  Sender: FDA-Public Use
  Company Number: US-NOVARTISTESTPH-NVSC2021US192974

PATIENT
  Sex: Male

DRUGS (2)
  1. ENTRESTO [Suspect]
     Active Substance: SACUBITRIL\VALSARTAN
     Indication: Product used for unknown indication
     Dosage: 1 DF (49/51 MG)
     Route: 065
     Dates: start: 202107
  2. ENTRESTO [Suspect]
     Active Substance: SACUBITRIL\VALSARTAN
     Dosage: 1 DF (97/103 MG)
     Route: 065

REACTIONS (4)
  - Sinus congestion [Unknown]
  - Sneezing [Unknown]
  - Dyspnoea [Recovered/Resolved]
  - Fatigue [Recovered/Resolved]
